FAERS Safety Report 19975058 (Version 1)
Quarter: 2021Q4

REPORT INFORMATION
  Report Type: Spontaneous
  Country: US (occurrence: US)
  Receive Date: 20211020
  Receipt Date: 20211020
  Transmission Date: 20220303
  Serious: No
  Sender: FDA-Public Use
  Company Number: US-ALLERGAN-2100661US

PATIENT
  Age: 75 Year
  Sex: Male

DRUGS (3)
  1. LINZESS [Suspect]
     Active Substance: LINACLOTIDE
     Indication: Constipation
     Dosage: 72 ?G, QD
     Route: 048
     Dates: start: 20201231, end: 20210106
  2. MELOXICAM [Concomitant]
     Active Substance: MELOXICAM
     Indication: Arthropathy
  3. TYLENOL [Concomitant]
     Active Substance: ACETAMINOPHEN

REACTIONS (3)
  - Inappropriate schedule of product administration [Unknown]
  - Gastrointestinal sounds abnormal [Recovered/Resolved]
  - Diarrhoea [Recovered/Resolved]

NARRATIVE: CASE EVENT DATE: 20210105
